FAERS Safety Report 8536450-1 (Version None)
Quarter: 2012Q2

REPORT INFORMATION
  Report Type: 
  Country: None (occurrence: None)
  Receive Date: 20120412
  Receipt Date: 20091117
  Transmission Date: 20120825
  Serious: Yes (Disabling)
  Sender: FDA-Public Use
  Company Number: PHEH2009US16396

PATIENT
  Age: 73 Year
  Sex: Male

DRUGS (5)
  1. THALIDOMIDE [Concomitant]
  2. AREDIA [Suspect]
     Dates: start: 20060601
  3. VELCADE [Concomitant]
  4. REVLIMID [Suspect]
     Indication: MULTIPLE MYELOMA
     Dosage: 15 MG, QD, ORAL
     Route: 048
     Dates: start: 20081101, end: 20090801
  5. DECADRON [Concomitant]

REACTIONS (1)
  - DISEASE PROGRESSION [None]
